FAERS Safety Report 8224222-7 (Version None)
Quarter: 2012Q1

REPORT INFORMATION
  Report Type: 
  Country: None (occurrence: None)
  Receive Date: 20120320
  Receipt Date: 20120320
  Transmission Date: 20120608
  Serious: No
  Sender: FDA-Public Use
  Company Number: None

PATIENT
  Age: 51 Year
  Sex: Male

DRUGS (1)
  1. ZELBORAF [Suspect]
     Indication: METASTATIC MALIGNANT MELANOMA
     Dosage: 960MG BID PO
     Route: 048
     Dates: start: 20120104, end: 20120315

REACTIONS (3)
  - OEDEMA PERIPHERAL [None]
  - YELLOW SKIN [None]
  - JOINT SWELLING [None]
